FAERS Safety Report 24465484 (Version 2)
Quarter: 2024Q4

REPORT INFORMATION
  Report Type: Spontaneous
  Country: CN (occurrence: CN)
  Receive Date: 20241018
  Receipt Date: 20241210
  Transmission Date: 20250114
  Serious: Yes (Life-Threatening, Other)
  Sender: BAYER HEALTHCARE PHARMACEUTICALS INC.
  Company Number: CN-BAYER-2024A149302

PATIENT
  Age: 45 Year
  Sex: Male
  Weight: 100 kg

DRUGS (1)
  1. ULTRAVIST [Suspect]
     Active Substance: IOPROMIDE
     Indication: Angiogram
     Dosage: 100 ML, ONCE
     Route: 041
     Dates: start: 20241015, end: 20241015

REACTIONS (5)
  - Contrast media allergy [Recovering/Resolving]
  - Rash pruritic [Recovering/Resolving]
  - Flushing [Recovered/Resolved]
  - Dysphonia [Recovering/Resolving]
  - Respiratory rate increased [Recovering/Resolving]

NARRATIVE: CASE EVENT DATE: 20241015
